FAERS Safety Report 5052596-7 (Version None)
Quarter: 2006Q3

REPORT INFORMATION
  Report Type: 
  Country: None (occurrence: None)
  Receive Date: 20060717
  Receipt Date: 20060626
  Transmission Date: 20061208
  Serious: Yes (Other)
  Sender: FDA-Public Use
  Company Number: JP-JPN-A200602275

PATIENT
  Age: 52 Year
  Sex: Male
  Weight: 76 kg

DRUGS (11)
  1. ZOVIRAX [Suspect]
     Indication: HERPES ZOSTER
     Dosage: 400MG PER DAY
     Route: 048
     Dates: start: 20060623, end: 20060625
  2. WYTENS [Concomitant]
     Route: 048
  3. ALLOPURINOL [Concomitant]
     Route: 048
  4. ADALAT [Concomitant]
     Route: 048
  5. ARTIST [Concomitant]
     Route: 048
  6. PRECIPITATED CALCIUM CARBONATE [Concomitant]
     Route: 048
  7. CARDENALIN [Concomitant]
     Route: 048
  8. LASIX [Concomitant]
     Route: 065
  9. RENAGEL [Concomitant]
     Route: 048
  10. ALFAROL [Concomitant]
     Route: 048
  11. CRAVIT [Concomitant]
     Route: 065

REACTIONS (3)
  - DIZZINESS [None]
  - HALLUCINATION [None]
  - NERVOUS SYSTEM DISORDER [None]
